FAERS Safety Report 24961380 (Version 1)
Quarter: 2025Q1

REPORT INFORMATION
  Report Type: Spontaneous
  Country: FR (occurrence: FR)
  Receive Date: 20250212
  Receipt Date: 20250212
  Transmission Date: 20250409
  Serious: Yes (Hospitalization, Other)
  Sender: ALEXION PHARMACEUTICALS
  Company Number: FR-SA-2024SA367080

PATIENT
  Age: 3 Month
  Weight: 3 kg

DRUGS (5)
  1. NIRSEVIMAB [Suspect]
     Active Substance: NIRSEVIMAB
     Indication: Respiratory syncytial virus immunisation
  2. HEPATITIS B VIRUS VACCINE [Concomitant]
     Active Substance: HEPATITIS B VIRUS VACCINE
     Indication: Immunisation
     Route: 065
  3. PNEUMOCOCCAL VACCINE POLYVALENT [Concomitant]
     Active Substance: PNEUMOCOCCAL VACCINE POLYVALENT
     Indication: Immunisation
     Route: 065
  4. DIPHTHERIA AND TETANUS TOXOIDS AND PERTUSSIS VACCINE ADSORBED AND HAEM [Concomitant]
     Active Substance: DIPHTHERIA AND TETANUS TOXOIDS AND PERTUSSIS VACCINE ADSORBED AND HAEMOPHILUS B CONJUGATE VACCINE
     Indication: Immunisation
     Route: 065
  5. CHOLECALCIFEROL [Concomitant]
     Active Substance: CHOLECALCIFEROL
     Dosage: 2 DROP, QD
     Route: 065

REACTIONS (11)
  - Respiratory syncytial virus bronchiolitis [Unknown]
  - Vomiting [Unknown]
  - Secretion discharge [Unknown]
  - Diarrhoea [Unknown]
  - Cough [Unknown]
  - Rhinitis [Unknown]
  - Rhonchi [Unknown]
  - Crying [Unknown]
  - Asthenia [Unknown]
  - Somnolence [Unknown]
  - Drug ineffective [Unknown]
